FAERS Safety Report 17183384 (Version 2)
Quarter: 2020Q1

REPORT INFORMATION
  Report Type: Spontaneous
  Country: DE (occurrence: DE)
  Receive Date: 20191220
  Receipt Date: 20200103
  Transmission Date: 20200409
  Serious: Yes (Hospitalization, Other)
  Sender: FDA-Public Use
  Company Number: DE-TORRENT-00016262

PATIENT
  Age: 80 Year
  Sex: Female
  Weight: 58 kg

DRUGS (5)
  1. AZACITIDINE. [Suspect]
     Active Substance: AZACITIDINE
     Indication: ACUTE MYELOID LEUKAEMIA
     Dosage: 120.8 MG, QD
     Route: 058
     Dates: start: 20190725, end: 20190731
  2. PREDNICARBATE. [Concomitant]
     Active Substance: PREDNICARBATE
     Indication: PRURITUS
     Dosage: UNKNOWN
     Dates: start: 20190813, end: 20190818
  3. LEVOFLOXACIN. [Suspect]
     Active Substance: LEVOFLOXACIN
     Indication: INFECTION PROPHYLAXIS
     Dosage: 500 MG QD
     Route: 048
     Dates: start: 20190716, end: 20190818
  4. KALIUMCHLORID [Concomitant]
     Active Substance: POTASSIUM CHLORIDE
     Indication: OEDEMA PERIPHERAL
     Dosage: UNKNOWN
     Dates: start: 20190808, end: 20190818
  5. TORASEMIDE [Concomitant]
     Active Substance: TORSEMIDE
     Indication: OEDEMA PERIPHERAL
     Dosage: UNKNOWN
     Dates: start: 20190808, end: 20190812

REACTIONS (1)
  - Dermatitis exfoliative generalised [Recovered/Resolved]

NARRATIVE: CASE EVENT DATE: 20190819
